FAERS Safety Report 7248850-0 (Version None)
Quarter: 2011Q1

REPORT INFORMATION
  Report Type: 
  Country: None (occurrence: None)
  Receive Date: 20110128
  Receipt Date: 20100526
  Transmission Date: 20110831
  Serious: Yes (Hospitalization)
  Sender: FDA-Public Use
  Company Number: US-BAYER-200938778NA

PATIENT
  Sex: Female
  Weight: 79 kg

DRUGS (10)
  1. ANTIBIOTICS [Concomitant]
  2. PROPOXYPHENE NAPSYLATE W/ ACETAMINOPHEN [Concomitant]
     Dosage: 10065 UNK, UNK
     Dates: start: 20080101
  3. YAZ [Suspect]
     Indication: ACNE
     Route: 048
     Dates: start: 20060101, end: 20080615
  4. NEXIUM [Concomitant]
     Dosage: UNK
     Dates: start: 20080101
  5. CEPHALEXIN [Concomitant]
     Dosage: 500 MG, UNK
     Dates: start: 20070101, end: 20080101
  6. ANTIMIGRAINE PREPARATIONS [Concomitant]
     Indication: MIGRAINE
  7. YAZ [Suspect]
     Indication: PREMENSTRUAL SYNDROME
  8. LORTAB [Concomitant]
     Indication: PAIN
  9. SEROQUEL [Concomitant]
     Dosage: 540 MG, UNK
     Dates: start: 20080101
  10. DEMEROL [Concomitant]
     Indication: PAIN
     Dosage: UNK
     Dates: start: 20081219, end: 20081219

REACTIONS (10)
  - GALLBLADDER DISORDER [None]
  - COW'S MILK INTOLERANCE [None]
  - FAT INTOLERANCE [None]
  - ABDOMINAL PAIN UPPER [None]
  - PELVIC PAIN [None]
  - NAUSEA [None]
  - DIARRHOEA [None]
  - VOMITING [None]
  - EPIGASTRIC DISCOMFORT [None]
  - CHOLELITHIASIS [None]
